FAERS Safety Report 6100577-4 (Version None)
Quarter: 2009Q1

REPORT INFORMATION
  Report Type: 
  Country: None (occurrence: None)
  Receive Date: 20090227
  Receipt Date: 20090227
  Transmission Date: 20090719
  Serious: No
  Sender: FDA-Public Use
  Company Number: None

PATIENT
  Age: 53 Year
  Sex: Female
  Weight: 56.246 kg

DRUGS (1)
  1. ALENDRONATE SODIUM [Suspect]
     Indication: OSTEOPOROSIS
     Dosage: 70MG ONCE A WEEK PO
     Route: 048
     Dates: start: 20090110, end: 20090110

REACTIONS (2)
  - ARTHRALGIA [None]
  - INFLUENZA LIKE ILLNESS [None]
